FAERS Safety Report 8299162-8 (Version None)
Quarter: 2012Q2

REPORT INFORMATION
  Report Type: 
  Country: None (occurrence: None)
  Receive Date: 20120419
  Receipt Date: 20120418
  Transmission Date: 20120825
  Serious: Yes (Hospitalization)
  Sender: FDA-Public Use
  Company Number: PHHY2012AU032411

PATIENT
  Age: 50 Year
  Sex: Male

DRUGS (1)
  1. PERINDOPRIL+INDAPAMIDE [Suspect]
     Route: 048

REACTIONS (1)
  - HYPERTENSION [None]
